FAERS Safety Report 14500262 (Version 1)
Quarter: 2018Q1

REPORT INFORMATION
  Report Type: Spontaneous
  Country: ZA (occurrence: ZA)
  Receive Date: 20180207
  Receipt Date: 20180207
  Transmission Date: 20180509
  Serious: Yes (Death)
  Sender: FDA-Public Use
  Company Number: ZA-MYLANLABS-2018M1007795

PATIENT
  Age: 74 Year
  Sex: Male

DRUGS (5)
  1. SPIRACTIN (SPIRONOLACTONE) [Concomitant]
     Active Substance: SPIRONOLACTONE
     Indication: DIURETIC THERAPY
     Dosage: 25 MG, UNK
     Route: 048
     Dates: start: 201711, end: 201712
  2. SALAZOPYRIN [Concomitant]
     Active Substance: SULFASALAZINE
     Indication: GASTROINTESTINAL DISORDER
     Dosage: 500 MG, UNK
     Route: 048
     Dates: start: 201711, end: 201712
  3. PEARINDA [Concomitant]
     Active Substance: PERINDOPRIL ERBUMINE
     Indication: HYPERTENSION
     Dosage: 4 MG, UNK
     Route: 048
     Dates: start: 201711, end: 201712
  4. MYLAN FUROSEMIDE 40 [Suspect]
     Active Substance: FUROSEMIDE
     Indication: DIURETIC THERAPY
     Dosage: 40 MG, UNK
     Route: 048
     Dates: start: 201710, end: 201712
  5. CIPLA-SIMVASTATIN [Concomitant]
     Active Substance: SIMVASTATIN
     Indication: BLOOD CHOLESTEROL ABNORMAL
     Dosage: 10 MG, UNK
     Route: 048
     Dates: start: 201711, end: 201712

REACTIONS (1)
  - Death [Fatal]

NARRATIVE: CASE EVENT DATE: 20171209
